FAERS Safety Report 25180481 (Version 1)
Quarter: 2025Q2

REPORT INFORMATION
  Report Type: Spontaneous
  Country: FR (occurrence: FR)
  Receive Date: 20250409
  Receipt Date: 20250409
  Transmission Date: 20250716
  Serious: Yes (Hospitalization)
  Sender: MYLAN
  Company Number: FR-MYLANLABS-2025M1030519

PATIENT
  Age: 9 Year
  Sex: Female

DRUGS (6)
  1. METHYLPHENIDATE [Suspect]
     Active Substance: METHYLPHENIDATE
     Indication: Intellectual disability
  2. METHYLPHENIDATE [Suspect]
     Active Substance: METHYLPHENIDATE
     Indication: Neurodevelopmental disorder
  3. RISPERIDONE [Suspect]
     Active Substance: RISPERIDONE
     Indication: Intellectual disability
  4. RISPERIDONE [Suspect]
     Active Substance: RISPERIDONE
     Indication: Neurodevelopmental disorder
  5. MELATONIN [Suspect]
     Active Substance: MELATONIN
     Indication: Intellectual disability
  6. MELATONIN [Suspect]
     Active Substance: MELATONIN
     Indication: Neurodevelopmental disorder

REACTIONS (2)
  - Drug ineffective for unapproved indication [Unknown]
  - Off label use [Unknown]
